FAERS Safety Report 6147912-9 (Version None)
Quarter: 2009Q2

REPORT INFORMATION
  Report Type: 
  Country: None (occurrence: None)
  Receive Date: 20090408
  Receipt Date: 20090402
  Transmission Date: 20091009
  Serious: Yes (Life-Threatening, Hospitalization)
  Sender: FDA-Public Use
  Company Number: JP-TYCO HEALTHCARE/MALLINCKRODT-T200900783

PATIENT
  Age: 38 Year
  Sex: Female

DRUGS (1)
  1. OPTIRAY 300 [Suspect]
     Indication: UROGRAM
     Dosage: 25 ML, SINGLE
     Route: 042
     Dates: start: 20090401, end: 20090401

REACTIONS (1)
  - ANAPHYLACTIC SHOCK [None]
